FAERS Safety Report 14991676 (Version 1)
Quarter: 2018Q2

REPORT INFORMATION
  Report Type: Spontaneous
  Country: US (occurrence: US)
  Receive Date: 20180608
  Receipt Date: 20180608
  Transmission Date: 20180711
  Serious: Yes (Other)
  Sender: FDA-Public Use
  Company Number: US-TEVA-2018-US-902660

PATIENT
  Sex: Female

DRUGS (1)
  1. COPAXONE [Suspect]
     Active Substance: GLATIRAMER ACETATE
     Indication: MULTIPLE SCLEROSIS
     Route: 065
     Dates: start: 20150828, end: 20180409

REACTIONS (5)
  - Immune system disorder [Unknown]
  - Drug ineffective [Unknown]
  - Acute febrile neutrophilic dermatosis [Unknown]
  - Tooth abscess [Unknown]
  - Rash [Unknown]

NARRATIVE: CASE EVENT DATE: 201804
